FAERS Safety Report 8906219 (Version 2)
Quarter: 2012Q4

REPORT INFORMATION
  Report Type: 
  Country: US (occurrence: None)
  Receive Date: 20121114
  Receipt Date: 20121127
  Transmission Date: 20130627
  Serious: Yes (Other)
  Sender: FDA-Public Use
  Company Number: None

PATIENT
  Age: 63 Year
  Sex: Female
  Weight: 48.5 kg

DRUGS (3)
  1. TPN ELECTROLYTES [Suspect]
     Indication: TPN
     Dosage: TPN w/ K+Cl
     Dates: start: 20120815, end: 20120826
  2. TPN ELECTROLYTES [Suspect]
     Indication: NUTRITIONAL SUPPORT
     Dosage: TPN w/ K+Cl
     Dates: start: 20120815, end: 20120826
  3. TPN ELECTROLYTES [Suspect]
     Indication: CANCER
     Dosage: TPN w/ K+Cl
     Dates: start: 20120815, end: 20120826

REACTIONS (2)
  - Product quality issue [None]
  - Bronchopulmonary aspergillosis [None]
